FAERS Safety Report 5899481-6 (Version None)
Quarter: 2008Q3

REPORT INFORMATION
  Report Type: 
  Country: None (occurrence: None)
  Receive Date: 20080926
  Receipt Date: 20080917
  Transmission Date: 20090109
  Serious: Yes (Other)
  Sender: FDA-Public Use
  Company Number: US-JNJFOC-20080905175

PATIENT
  Sex: Female
  Weight: 52.62 kg

DRUGS (8)
  1. DURAGESIC-100 [Suspect]
     Indication: RADICULAR PAIN
     Route: 062
  2. ULTRAM [Concomitant]
     Indication: BACK PAIN
     Route: 048
  3. ESTRADERM [Concomitant]
     Indication: OOPHORECTOMY
     Route: 062
  4. NEURONTIN [Concomitant]
     Indication: NEURALGIA
     Route: 048
  5. KLONOPIN [Concomitant]
     Indication: ANXIETY
     Route: 048
  6. NORCO [Concomitant]
     Indication: BREAKTHROUGH PAIN
     Route: 048
  7. TYLENOL (CAPLET) [Concomitant]
     Indication: PAIN
     Route: 048
  8. ADVIL [Concomitant]
     Indication: PAIN
     Route: 048

REACTIONS (3)
  - APPLICATION SITE INFLAMMATION [None]
  - URINARY TRACT INFECTION [None]
  - WITHDRAWAL SYNDROME [None]
